FAERS Safety Report 6681535-8 (Version None)
Quarter: 2010Q2

REPORT INFORMATION
  Report Type: 
  Country: None (occurrence: None)
  Receive Date: 20100414
  Receipt Date: 20100402
  Transmission Date: 20101027
  Serious: Yes (Hospitalization)
  Sender: FDA-Public Use
  Company Number: PHHY2010US10755

PATIENT
  Sex: Female
  Weight: 75.193 kg

DRUGS (5)
  1. GLEEVEC [Suspect]
     Indication: CHRONIC MYELOID LEUKAEMIA
     Dosage: 400 MG,DAILY
     Route: 048
     Dates: start: 20100219, end: 20100221
  2. THYROID TAB [Concomitant]
     Indication: HYPOTHYROIDISM
     Dosage: 0.5 MG, QD
     Route: 048
  3. COENZYME Q10 [Concomitant]
     Dosage: 200 MG, BID
     Route: 048
  4. LOVAZA [Concomitant]
     Route: 048
  5. MULTI-VITAMIN [Concomitant]
     Dosage: UNK
     Route: 048

REACTIONS (3)
  - CHILLS [None]
  - DYSTONIA [None]
  - TREMOR [None]
